FAERS Safety Report 6607541-7 (Version None)
Quarter: 2010Q1

REPORT INFORMATION
  Report Type: 
  Country: None (occurrence: None)
  Receive Date: 20100301
  Receipt Date: 20100223
  Transmission Date: 20100710
  Serious: Yes (Death)
  Sender: FDA-Public Use
  Company Number: PHHY2010US10691

PATIENT
  Sex: Male
  Weight: 69 kg

DRUGS (1)
  1. EXJADE [Suspect]
     Indication: LYMPHATIC DISORDER
     Dosage: 500 MG, TID
     Route: 048
     Dates: start: 20070621

REACTIONS (1)
  - DEATH [None]
